FAERS Safety Report 9511987 (Version 1)
Quarter: 2013Q3

REPORT INFORMATION
  Report Type: Spontaneous
  Country: US (occurrence: US)
  Receive Date: 20130910
  Receipt Date: 20130910
  Transmission Date: 20140515
  Serious: Yes (Other)
  Sender: FDA-Public Use
  Company Number: PHEH2013US018870

PATIENT
  Age: 76 Year
  Sex: Female

DRUGS (11)
  1. DIOVAN [Suspect]
     Dosage: 80 MG, BID
     Route: 048
  2. PLAVIX [Concomitant]
     Dosage: 75 MG, QD
     Route: 048
  3. LIPITOR [Concomitant]
     Dosage: 80 MG, QD
     Route: 048
  4. GEMFIBROZIL [Concomitant]
     Dosage: 600 MG, QD
     Route: 048
  5. METOPROLOL TARTRATE [Concomitant]
     Dosage: 50 MG, QD
     Route: 048
  6. ZETIA [Concomitant]
     Dosage: 10 MG, QD
  7. HUMULIN R [Concomitant]
     Dosage: 1 DF (17ML/12ML), UNK
  8. HUMULIN N [Concomitant]
     Dosage: 1 DF (27ML/17ML), UNK
  9. NITROGLYCERIN [Concomitant]
     Dosage: 0.4 MG, UNK
     Route: 062
  10. NITROGLYCERIN [Concomitant]
     Dosage: 0.4 MG, UNK
     Route: 060
  11. ASPIRIN [Concomitant]
     Dosage: 83 MG, QD

REACTIONS (1)
  - Cerebrovascular accident [Unknown]
